FAERS Safety Report 5453198-0 (Version None)
Quarter: 2007Q3

REPORT INFORMATION
  Report Type: 
  Country: None (occurrence: None)
  Receive Date: 20070914
  Receipt Date: 20070906
  Transmission Date: 20080115
  Serious: Yes (Other)
  Sender: FDA-Public Use
  Company Number: PT-MERCK-0709PRT00003

PATIENT
  Age: 52 Year
  Sex: Male

DRUGS (2)
  1. VYTORIN [Suspect]
     Indication: DYSLIPIDAEMIA
     Route: 048
     Dates: start: 20070701, end: 20070701
  2. VYTORIN [Concomitant]
     Route: 048
     Dates: start: 20060101, end: 20060101

REACTIONS (3)
  - DISCOMFORT [None]
  - LARYNGEAL OEDEMA [None]
  - TONGUE OEDEMA [None]
